FAERS Safety Report 7034503-0 (Version None)
Quarter: 2010Q4

REPORT INFORMATION
  Report Type: 
  Country: None (occurrence: None)
  Receive Date: 20101008
  Receipt Date: 20101001
  Transmission Date: 20110411
  Serious: Yes (Hospitalization)
  Sender: FDA-Public Use
  Company Number: US-JNJFOC-20100503449

PATIENT
  Sex: Male
  Weight: 11.34 kg

DRUGS (6)
  1. CONCENTRATED MOTRIN INFANTS DROPS [Suspect]
     Indication: TEETHING
     Dosage: DOSE/FREQUENCY REPORTED AS ^WHATEVER THE BOTTLE SAID^
     Route: 048
  2. CONCENTRATED MOTRIN INFANTS DROPS [Suspect]
     Indication: LABYRINTHITIS
     Dosage: DOSE/FREQUENCY REPORTED AS ^WHATEVER THE BOTTLE SAID^
     Route: 048
  3. CONCENTRATED MOTRIN INFANTS DROPS [Suspect]
     Indication: PYREXIA
     Dosage: DOSE/FREQUENCY REPORTED AS ^WHATEVER THE BOTTLE SAID^
     Route: 048
  4. CONCENTRATED TYLENOL INFANT DROPS [Suspect]
     Indication: TEETHING
     Dosage: DOSE/FREQUENCY REPORTED AS ^WHATEVER THE BOTTLE SAID^
     Route: 048
  5. CONCENTRATED TYLENOL INFANT DROPS [Suspect]
     Indication: EAR INFECTION
     Dosage: DOSE/FREQUENCY REPORTED AS ^WHATEVER THE BOTTLE SAID^
     Route: 048
  6. CONCENTRATED TYLENOL INFANT DROPS [Suspect]
     Indication: PYREXIA
     Dosage: DOSE/FREQUENCY REPORTED AS ^WHATEVER THE BOTTLE SAID^
     Route: 048

REACTIONS (3)
  - HAEMATOCHEZIA [None]
  - LIVER FUNCTION TEST ABNORMAL [None]
  - PRODUCT QUALITY ISSUE [None]
